FAERS Safety Report 6826125-9 (Version None)
Quarter: 2010Q3

REPORT INFORMATION
  Report Type: 
  Country: None (occurrence: None)
  Receive Date: 20100709
  Receipt Date: 20100628
  Transmission Date: 20110219
  Serious: Yes (Hospitalization)
  Sender: FDA-Public Use
  Company Number: US-JNJFOC-20100700310

PATIENT
  Sex: Female
  Weight: 66.2 kg

DRUGS (5)
  1. INFLIXIMAB, RECOMBINANT [Suspect]
     Indication: CROHN'S DISEASE
     Dosage: LAST DOSE PRIOR TO EVENT
     Route: 042
  2. INFLIXIMAB, RECOMBINANT [Suspect]
     Route: 042
  3. MESALAMINE [Concomitant]
     Route: 048
  4. ANTIBIOTICS [Concomitant]
  5. CELLCEPT [Concomitant]

REACTIONS (1)
  - FISTULA [None]
